FAERS Safety Report 19666867 (Version 3)
Quarter: 2023Q4

REPORT INFORMATION
  Report Type: Spontaneous
  Country: JP (occurrence: JP)
  Receive Date: 20210806
  Receipt Date: 20231222
  Transmission Date: 20240109
  Serious: Yes (Death, Other)
  Sender: FDA-Public Use
  Company Number: JP-GSKNCCC-CASE-01268523_AE-47976

PATIENT

DRUGS (2)
  1. FLUTICASONE FUROATE\VILANTEROL TRIFENATATE [Suspect]
     Active Substance: FLUTICASONE FUROATE\VILANTEROL TRIFENATATE
     Indication: Asthma
     Dosage: 200 ?G
     Dates: start: 202003
  2. SYMBICORT [Concomitant]
     Active Substance: BUDESONIDE\FORMOTEROL FUMARATE DIHYDRATE
     Indication: Asthma
     Dosage: UNK, 8 INHALATIONS DAILY
     Route: 055
     Dates: end: 202003

REACTIONS (1)
  - Death [Fatal]
